FAERS Safety Report 11797239 (Version 1)
Quarter: 2015Q4

REPORT INFORMATION
  Report Type: Report from Study
  Country: NZ (occurrence: NZ)
  Receive Date: 20151203
  Receipt Date: 20151203
  Transmission Date: 20160305
  Serious: Yes (Hospitalization)
  Sender: FDA-Public Use
  Company Number: NZ-ABBVIE-11P-118-0836294-03

PATIENT
  Age: 50 Year
  Sex: Male

DRUGS (24)
  1. CATAPRES [Concomitant]
     Active Substance: CLONIDINE HYDROCHLORIDE
     Indication: HYPERTENSION
     Route: 061
     Dates: start: 20091027
  2. LACTULOSE. [Concomitant]
     Active Substance: LACTULOSE
     Indication: CONSTIPATION PROPHYLAXIS
     Dosage: 20-40 ML
     Dates: start: 20091029
  3. SALBUTAMOL [Concomitant]
     Active Substance: ALBUTEROL
     Indication: OBSTRUCTIVE AIRWAYS DISORDER
  4. GABAPENTIN. [Concomitant]
     Active Substance: GABAPENTIN
     Indication: ABDOMINAL PAIN
     Dosage: 300 TO 900
     Dates: start: 20091027
  5. PREDNISONE. [Concomitant]
     Active Substance: PREDNISONE
     Indication: RESPIRATORY TRACT OEDEMA
     Dates: start: 20091102
  6. PREDNISONE. [Concomitant]
     Active Substance: PREDNISONE
     Dates: start: 20100128, end: 20100428
  7. PREDNISONE. [Concomitant]
     Active Substance: PREDNISONE
     Dates: start: 20100429, end: 20101103
  8. CHOLECALCIFEROL [Concomitant]
     Active Substance: CHOLECALCIFEROL
     Indication: BONE DENSITY ABNORMAL
     Dates: start: 20101112
  9. ZOLEDRONATE [Concomitant]
     Active Substance: ZOLEDRONIC ACID
     Indication: OSTEOPOROSIS
     Route: 042
     Dates: start: 20080502, end: 20130502
  10. MORPHINE [Concomitant]
     Active Substance: MORPHINE
     Indication: ABDOMINAL PAIN
     Dosage: 10-20 MG
     Dates: start: 20091030
  11. PREDNISONE. [Concomitant]
     Active Substance: PREDNISONE
     Dates: start: 20101224, end: 20110128
  12. ENSURE [Concomitant]
     Active Substance: AMINO ACIDS\DEXTROSE\ELECTROLYTES NOS\SOYBEAN OIL\VITAMINS
     Indication: PRODUCT USED FOR UNKNOWN INDICATION
     Dates: start: 20091027
  13. SALBUTAMOL [Concomitant]
     Active Substance: ALBUTEROL
     Indication: ASTHMA
     Dosage: 100-200 MCG
     Dates: start: 20101223
  14. HUMIRA [Suspect]
     Active Substance: ADALIMUMAB
     Route: 058
  15. PREDNISONE. [Concomitant]
     Active Substance: PREDNISONE
     Indication: CROHN^S DISEASE
     Dates: start: 20091027, end: 20091102
  16. PREDNISONE. [Concomitant]
     Active Substance: PREDNISONE
     Dates: start: 20110413, end: 20110427
  17. FLIXOTIDE [Concomitant]
     Active Substance: FLUTICASONE PROPIONATE
     Indication: RESPIRATORY TRACT OEDEMA
     Dosage: 50-100 MCG
     Dates: start: 20101223
  18. HUMIRA [Suspect]
     Active Substance: ADALIMUMAB
     Route: 058
  19. ENTOCORT [Concomitant]
     Active Substance: BUDESONIDE
     Indication: CROHN^S DISEASE
     Dates: start: 20091027, end: 20100128
  20. ENTOCORT [Concomitant]
     Active Substance: BUDESONIDE
     Dates: start: 20100128, end: 20110429
  21. SEVREDOL [Concomitant]
     Active Substance: MORPHINE
     Indication: ABDOMINAL PAIN
     Dosage: 10 TO 20
     Dates: start: 20100728, end: 20110705
  22. PARACETAMOL [Concomitant]
     Active Substance: ACETAMINOPHEN
     Indication: ABDOMINAL PAIN
     Dates: start: 20091027
  23. PREDNISONE. [Concomitant]
     Active Substance: PREDNISONE
     Dates: start: 20110427, end: 20110701
  24. HUMIRA [Suspect]
     Active Substance: ADALIMUMAB
     Indication: CROHN^S DISEASE
     Dosage: BASELINE
     Route: 058
     Dates: start: 20091023, end: 20091023

REACTIONS (2)
  - Anaemia [Recovered/Resolved]
  - Melaena [Recovered/Resolved]

NARRATIVE: CASE EVENT DATE: 20110701
